FAERS Safety Report 5570908-2 (Version None)
Quarter: 2007Q4

REPORT INFORMATION
  Report Type: 
  Country: None (occurrence: None)
  Receive Date: 20071221
  Receipt Date: 20071212
  Transmission Date: 20080405
  Serious: Yes (Hospitalization)
  Sender: FDA-Public Use
  Company Number: FR-AVENTIS-200714017FR

PATIENT
  Age: 86 Year
  Sex: Female

DRUGS (5)
  1. LASIX [Suspect]
     Route: 048
     Dates: end: 20071106
  2. FOZITEC                            /00915301/ [Suspect]
     Route: 048
     Dates: end: 20071106
  3. DIAMICRON [Suspect]
     Route: 048
     Dates: end: 20071106
  4. NOOTROPYL [Suspect]
     Route: 048
     Dates: end: 20071106
  5. CIFLOX                             /00697201/ [Suspect]
     Indication: URINARY TRACT INFECTION
     Dates: end: 20071106

REACTIONS (4)
  - BLOOD CREATININE INCREASED [None]
  - DRUG INTERACTION [None]
  - HYPOGLYCAEMIA [None]
  - RENAL FAILURE ACUTE [None]
